FAERS Safety Report 9844986 (Version 1)
Quarter: 2014Q1

REPORT INFORMATION
  Report Type: Spontaneous
  Country: IT (occurrence: None)
  Receive Date: 20140122
  Receipt Date: 20140122
  Transmission Date: 20141002
  Serious: Yes (Other)
  Sender: FDA-Public Use
  Company Number: 2125147

PATIENT
  Age: 52 Year
  Sex: Female
  Weight: 56 kg

DRUGS (2)
  1. DOCETAXEL [Suspect]
     Indication: BREAST CANCER
     Dosage: (CYCLICAL)
     Route: 042
  2. (FARMORUBICINA) [Concomitant]

REACTIONS (3)
  - Swelling face [None]
  - Flushing [None]
  - Chest discomfort [None]
